FAERS Safety Report 5749507-5 (Version None)
Quarter: 2008Q2

REPORT INFORMATION
  Report Type: 
  Country: None (occurrence: None)
  Receive Date: 20080527
  Receipt Date: 20080521
  Transmission Date: 20081010
  Serious: Yes (Hospitalization)
  Sender: FDA-Public Use
  Company Number: B0521247A

PATIENT
  Age: 50 Year
  Sex: Female
  Weight: 102 kg

DRUGS (4)
  1. LAPATINIB [Suspect]
     Dosage: 1250MGD PER DAY
     Route: 048
     Dates: start: 20070915
  2. XELODA [Suspect]
     Dosage: 4000MG PER DAY
     Route: 048
     Dates: start: 20070915
  3. SPIDIFEN [Concomitant]
     Dosage: 1800MG PER DAY
     Route: 048
     Dates: start: 20080204, end: 20080428
  4. TRANSTEC [Concomitant]
     Indication: PAIN
     Dosage: 35UG EVERY 4 DAYS
     Dates: start: 20080407

REACTIONS (4)
  - ASTHENIA [None]
  - NAUSEA [None]
  - PAIN [None]
  - VOMITING [None]
